FAERS Safety Report 7625414-8 (Version None)
Quarter: 2011Q3

REPORT INFORMATION
  Report Type: 
  Country: None (occurrence: None)
  Receive Date: 20110701
  Receipt Date: 20100621
  Transmission Date: 20111222
  Serious: Yes (Other)
  Sender: FDA-Public Use
  Company Number: 7008688

PATIENT
  Age: 50 Year
  Sex: Female

DRUGS (2)
  1. NEURONTIN [Concomitant]
  2. REBIF [Suspect]
     Indication: PRODUCT USED FOR UNKNOWN INDICATION
     Dosage: SUBCUTANEOUS
     Route: 058
     Dates: start: 20100305, end: 20100501

REACTIONS (7)
  - CONVULSION [None]
  - ANXIETY [None]
  - PYREXIA [None]
  - MEMORY IMPAIRMENT [None]
  - CHILLS [None]
  - FATIGUE [None]
  - DISTURBANCE IN ATTENTION [None]
